FAERS Safety Report 5812150-3 (Version None)
Quarter: 2008Q3

REPORT INFORMATION
  Report Type: 
  Country: None (occurrence: None)
  Receive Date: 20080711
  Receipt Date: 20080625
  Transmission Date: 20090109
  Serious: Yes (Other)
  Sender: FDA-Public Use
  Company Number: DSA_32092_2008

PATIENT
  Sex: Female

DRUGS (3)
  1. TILAZEM (TILAZEM - DILTIAZEM  HYDROCHLORIDE) (NOT SPECIFIED) [Suspect]
     Indication: DRUG USE FOR UNKNOWN INDICATION
     Dosage: DF ORAL
     Route: 048
  2. VARENICLINE (CHAMPLIX - VARENICLINE) [Suspect]
     Indication: DRUG USE FOR UNKNOWN INDICATION
     Dosage: 1 MG BID
     Dates: start: 20080328
  3. DIOVAN /01319601/ [Concomitant]

REACTIONS (1)
  - BLOOD PRESSURE INCREASED [None]
